FAERS Safety Report 19583174 (Version 1)
Quarter: 2021Q3

REPORT INFORMATION
  Report Type: Spontaneous
  Country: US (occurrence: US)
  Receive Date: 20210720
  Receipt Date: 20210720
  Transmission Date: 20211014
  Serious: No
  Sender: FDA-Public Use
  Company Number: None

PATIENT
  Age: 59 Year
  Sex: Male
  Weight: 113 kg

DRUGS (1)
  1. ISOVUE 370 [Suspect]
     Active Substance: IOPAMIDOL
     Indication: X-RAY WITH CONTRAST
     Dosage: ?          OTHER FREQUENCY:ONE TIME;?
     Route: 022
     Dates: start: 20210719, end: 20210719

REACTIONS (1)
  - Torsade de pointes [None]

NARRATIVE: CASE EVENT DATE: 20210719
